FAERS Safety Report 16197897 (Version 2)
Quarter: 2019Q2

REPORT INFORMATION
  Report Type: Spontaneous
  Country: US (occurrence: US)
  Receive Date: 20190415
  Receipt Date: 20190506
  Transmission Date: 20190711
  Serious: No
  Sender: FDA-Public Use
  Company Number: US-PFIZER INC-2018028469

PATIENT
  Age: 61 Year
  Sex: Female

DRUGS (3)
  1. LYRICA [Suspect]
     Active Substance: PREGABALIN
     Indication: PAIN
     Dosage: 225 MG, UNK
  2. LYRICA [Suspect]
     Active Substance: PREGABALIN
     Dosage: 675 MG, DAILY (QTY 90 / DAYS^ SUPPLY 30)
  3. LYRICA [Suspect]
     Active Substance: PREGABALIN
     Dosage: 225 MG, 3X/DAY (225MG TAKEN BY MOUTH THREE TIMES DAILY)
     Route: 048
     Dates: start: 201811

REACTIONS (2)
  - Drug effective for unapproved indication [Unknown]
  - Prescribed overdose [Unknown]
